FAERS Safety Report 5132219-9 (Version None)
Quarter: 2006Q4

REPORT INFORMATION
  Report Type: 
  Country: None (occurrence: None)
  Receive Date: 20061017
  Receipt Date: 20061004
  Transmission Date: 20070319
  Serious: Yes (Other)
  Sender: FDA-Public Use
  Company Number: CHPA2006US10027

PATIENT
  Sex: Female

DRUGS (1)
  1. EXCEDRIN UNKNOWN  (NCH) (UNKNOWN) UNKNOWN [Suspect]
     Indication: HEADACHE
     Dosage: QAM, ORAL
     Route: 048

REACTIONS (2)
  - ANTICOAGULANT THERAPY [None]
  - DRUG ABUSER [None]
